FAERS Safety Report 9241680 (Version 3)
Quarter: 2015Q2

REPORT INFORMATION
  Report Type: Report from Study
  Country: US (occurrence: US)
  Receive Date: 20130419
  Receipt Date: 20150420
  Transmission Date: 20150821
  Serious: Yes (Hospitalization, Other)
  Sender: FDA-Public Use
  Company Number: PHEH2013US008471

PATIENT
  Age: 15 Year
  Sex: Female
  Weight: 55.2 kg

DRUGS (6)
  1. VITAMIIN C [Concomitant]
     Active Substance: ASCORBIC ACID
     Indication: PRODUCT USED FOR UNKNOWN INDICATION
     Route: 065
  2. AFINITOR [Suspect]
     Active Substance: EVEROLIMUS
     Indication: GANGLIOGLIOMA
     Dosage: 7.5 MG, QD
     Route: 048
     Dates: start: 20120925
  3. LAMICTAL XR [Concomitant]
     Active Substance: LAMOTRIGINE
     Indication: SEIZURE
     Dosage: 400 MG, DAILY (100 MG BREAK FAST AND LUNCH EACH AND 200 MG DINNER)
     Route: 065
  4. TAURINE [Concomitant]
     Active Substance: TAURINE
     Indication: PRODUCT USED FOR UNKNOWN INDICATION
     Route: 065
  5. MELATONIN [Concomitant]
     Active Substance: MELATONIN
     Indication: INSOMNIA
     Dosage: 6 MG, UNK
     Route: 065
  6. DAILY MULTIVITAMIN [Concomitant]
     Active Substance: VITAMINS
     Indication: PRODUCT USED FOR UNKNOWN INDICATION
     Route: 065

REACTIONS (11)
  - Seizure [Not Recovered/Not Resolved]
  - Asperger^s disorder [Not Recovered/Not Resolved]
  - Renal neoplasm [Unknown]
  - Tic [Not Recovered/Not Resolved]
  - Weight increased [Unknown]
  - Tourette^s disorder [Not Recovered/Not Resolved]
  - Oligomenorrhoea [Unknown]
  - Anxiety [Unknown]
  - Ovarian cyst [Unknown]
  - Polycystic ovaries [Unknown]
  - Menstruation irregular [Unknown]

NARRATIVE: CASE EVENT DATE: 201302
